FAERS Safety Report 6805927-9 (Version None)
Quarter: 2010Q2

REPORT INFORMATION
  Report Type: 
  Country: None (occurrence: None)
  Receive Date: 20100629
  Receipt Date: 20071107
  Transmission Date: 20101027
  Serious: No
  Sender: FDA-Public Use
  Company Number: US-PFIZER INC-2007093870

PATIENT
  Sex: Female
  Weight: 19.05 kg

DRUGS (9)
  1. ZYVOX [Suspect]
     Indication: OSTEOMYELITIS
     Route: 048
     Dates: start: 20070901
  2. DETROL LA [Concomitant]
     Indication: BLADDER SPASM
     Route: 048
  3. KEPPRA [Concomitant]
     Route: 048
  4. SEROQUEL [Concomitant]
     Route: 048
  5. AVELOX [Concomitant]
     Route: 048
  6. MULTI-VITAMINS [Concomitant]
     Route: 048
  7. VITAMIN C [Concomitant]
     Route: 048
  8. ANTIDIARRHOEAL MICROORGANISMS [Concomitant]
     Route: 048
  9. ACETYLSALICYLIC ACID [Concomitant]
     Route: 048

REACTIONS (2)
  - RED BLOOD CELL COUNT DECREASED [None]
  - WHITE BLOOD CELL COUNT DECREASED [None]
